FAERS Safety Report 5061065-X (Version None)
Quarter: 2006Q3

REPORT INFORMATION
  Report Type: 
  Country: None (occurrence: None)
  Receive Date: 20060719
  Receipt Date: 20060719
  Transmission Date: 20061208
  Serious: Yes (Hospitalization)
  Sender: FDA-Public Use
  Company Number: None

PATIENT
  Age: 68 Year
  Sex: Male
  Weight: 70.7611 kg

DRUGS (3)
  1. CIPROFLOXACIN [Suspect]
     Indication: INFECTION
     Dosage: 500MG IV Q12HR IV
     Route: 042
  2. VANCOMYCIN [Suspect]
     Dosage: 750 MG IV QD
     Route: 042
  3. PIPERACILLIN AND TAZOBACTAM [Suspect]
     Dosage: 3.375 GM Q6HR IV
     Route: 042

REACTIONS (5)
  - BLOOD GLUCOSE DECREASED [None]
  - DIARRHOEA [None]
  - LETHARGY [None]
  - MENTAL STATUS CHANGES [None]
  - ORAL INTAKE REDUCED [None]
